FAERS Safety Report 22942774 (Version 3)
Quarter: 2025Q3

REPORT INFORMATION
  Report Type: Report from Study
  Country: MY (occurrence: MY)
  Receive Date: 20230914
  Receipt Date: 20250721
  Transmission Date: 20251020
  Serious: Yes (Life-Threatening, Other)
  Sender: NOVARTIS
  Company Number: MY-002147023-NVSC2023MY196784

PATIENT
  Age: 54 Year
  Sex: Female
  Weight: 57 kg

DRUGS (1)
  1. SCEMBLIX [Suspect]
     Active Substance: ASCIMINIB HYDROCHLORIDE
     Indication: Chronic myeloid leukaemia
     Dosage: 80 MG, QD
     Route: 048
     Dates: start: 20230816, end: 20230826

REACTIONS (6)
  - Myocardial infarction [Recovering/Resolving]
  - Chest pain [Recovered/Resolved]
  - Chest discomfort [Unknown]
  - Dyspnoea exertional [Unknown]
  - Exercise tolerance decreased [Unknown]
  - Blood glucose fluctuation [Unknown]

NARRATIVE: CASE EVENT DATE: 20230819
